FAERS Safety Report 6428998-0 (Version None)
Quarter: 2009Q4

REPORT INFORMATION
  Report Type: 
  Country: None (occurrence: None)
  Receive Date: 20091105
  Receipt Date: 20091026
  Transmission Date: 20100525
  Serious: Yes (Other)
  Sender: FDA-Public Use
  Company Number: US-PFIZER INC-2009261988

PATIENT

DRUGS (1)
  1. VIAGRA [Suspect]

REACTIONS (8)
  - EXOPHTHALMOS [None]
  - EYE PAIN [None]
  - EYELID PTOSIS [None]
  - FACIAL PAIN [None]
  - HYPOAESTHESIA FACIAL [None]
  - LACRIMATION INCREASED [None]
  - NECK PAIN [None]
  - OCULAR HYPERAEMIA [None]
